FAERS Safety Report 7813149-8 (Version None)
Quarter: 2011Q4

REPORT INFORMATION
  Report Type: 
  Country: None (occurrence: None)
  Receive Date: 20111013
  Receipt Date: 20111006
  Transmission Date: 20120403
  Serious: Yes (Hospitalization)
  Sender: FDA-Public Use
  Company Number: PHHY2011IT88559

PATIENT
  Sex: Male

DRUGS (1)
  1. AMOXICILLIN [Suspect]
     Indication: DENTAL OPERATION
     Dosage: 2 G, QD
     Dates: start: 20110923, end: 20110929

REACTIONS (4)
  - URTICARIA [None]
  - RASH ERYTHEMATOUS [None]
  - RASH MACULAR [None]
  - GENERALISED OEDEMA [None]
